FAERS Safety Report 8155449-0 (Version None)
Quarter: 2012Q1

REPORT INFORMATION
  Report Type: 
  Country: None (occurrence: None)
  Receive Date: 20120206
  Receipt Date: 20120125
  Transmission Date: 20120608
  Serious: Yes (Hospitalization)
  Sender: FDA-Public Use
  Company Number: AEDEU201200036

PATIENT
  Age: 45 Year
  Sex: Female

DRUGS (6)
  1. FLUTICASONE PROPIONATE W/SALMETEROL [Concomitant]
  2. FENOTEROL W/IPRATROPIUM BROMIDE [Concomitant]
  3. PROLASTIN [Suspect]
     Indication: ALPHA-1 ANTI-TRYPSIN DEFICIENCY
     Dosage: 3.6 GM;QW;IV
     Route: 042
     Dates: start: 20120118
  4. SPIRIVA [Concomitant]
  5. THEOPHYLLINE [Concomitant]
  6. CITALOPRAM HYDROBROMIDE [Concomitant]

REACTIONS (2)
  - ANAPHYLACTIC SHOCK [None]
  - INFUSION RELATED REACTION [None]
